FAERS Safety Report 4542949-5 (Version None)
Quarter: 2004Q4

REPORT INFORMATION
  Report Type: 
  Country: None (occurrence: None)
  Receive Date: 20041229
  Receipt Date: 20041213
  Transmission Date: 20050328
  Serious: Yes (Hospitalization)
  Sender: FDA-Public Use
  Company Number: 2004BI000021

PATIENT
  Age: 56 Year
  Sex: Female
  Weight: 97.5234 kg

DRUGS (4)
  1. AVONEX [Suspect]
     Indication: MULTIPLE SCLEROSIS
     Dosage: 30 UG; QW; IM
     Route: 030
     Dates: start: 20010101, end: 20030101
  2. AVONEX [Suspect]
     Indication: MULTIPLE SCLEROSIS
     Dosage: 30 UG; QW; IM
     Route: 030
     Dates: start: 20030101
  3. DILANTIN [Concomitant]
  4. CARBATROL [Concomitant]

REACTIONS (7)
  - ARTHRITIS [None]
  - FATIGUE [None]
  - FOOD POISONING [None]
  - INSOMNIA [None]
  - MULTIPLE SCLEROSIS [None]
  - MYALGIA [None]
  - WEIGHT INCREASED [None]
